FAERS Safety Report 8887244 (Version 4)
Quarter: 2014Q2

REPORT INFORMATION
  Report Type: Spontaneous
  Country: CA (occurrence: CA)
  Receive Date: 20121101
  Receipt Date: 20140415
  Transmission Date: 20141212
  Serious: Yes (Other)
  Sender: FDA-Public Use
  Company Number: CA-ROCHE-GNE286340

PATIENT
  Age: 48 Year
  Sex: Male
  Weight: 59.07 kg

DRUGS (12)
  1. XOLAIR [Suspect]
     Indication: ASTHMA
     Route: 058
     Dates: start: 20071218
  2. XOLAIR [Suspect]
     Dosage: 300 MG, Q2W
     Route: 058
     Dates: start: 20090708
  3. XOLAIR [Suspect]
     Dosage: 300 MG, Q2W
     Route: 058
     Dates: start: 20100223
  4. XOLAIR [Suspect]
     Route: 058
     Dates: start: 20121023
  5. XOLAIR [Suspect]
     Route: 065
     Dates: start: 20130212
  6. XOLAIR [Suspect]
     Route: 065
     Dates: start: 20130423
  7. XOLAIR [Suspect]
     Route: 065
     Dates: start: 20131107
  8. XOLAIR [Suspect]
     Route: 065
     Dates: start: 20140103
  9. SYMBICORT [Concomitant]
  10. UNIPHYL [Concomitant]
  11. SINGULAIR [Concomitant]
  12. VENTOLIN [Concomitant]

REACTIONS (12)
  - Asthma [Recovering/Resolving]
  - Dyspnoea [Unknown]
  - Nasopharyngitis [Unknown]
  - Chest pain [Unknown]
  - Rales [Unknown]
  - Productive cough [Unknown]
  - Sinusitis [Unknown]
  - Nasal congestion [Unknown]
  - Heart rate increased [Unknown]
  - Body temperature decreased [Unknown]
  - Eye swelling [Recovering/Resolving]
  - Conjunctivitis viral [Recovering/Resolving]
